FAERS Safety Report 9460924 (Version 1)
Quarter: 2013Q3

REPORT INFORMATION
  Report Type: Spontaneous
  Country: US (occurrence: US)
  Receive Date: 20130816
  Receipt Date: 20130816
  Transmission Date: 20140515
  Serious: Yes (Hospitalization)
  Sender: FDA-Public Use
  Company Number: US-BIOGENIDEC-2013BI074521

PATIENT
  Age: 57 Year
  Sex: Female

DRUGS (4)
  1. AVONEX [Suspect]
     Indication: MULTIPLE SCLEROSIS
     Route: 030
     Dates: start: 20010516, end: 2003
  2. AVONEX [Suspect]
     Indication: MULTIPLE SCLEROSIS
     Route: 030
     Dates: start: 2003
  3. PREDNISONE [Concomitant]
  4. DIOVAN [Concomitant]
     Indication: HYPERTENSION

REACTIONS (14)
  - Blood pressure abnormal [Recovered/Resolved]
  - Back pain [Not Recovered/Not Resolved]
  - Osteoporosis [Not Recovered/Not Resolved]
  - Osteopenia [Not Recovered/Not Resolved]
  - Herpes zoster [Recovered/Resolved]
  - Arthropod bite [Recovered/Resolved]
  - Blood potassium decreased [Not Recovered/Not Resolved]
  - Gait disturbance [Not Recovered/Not Resolved]
  - Tooth disorder [Not Recovered/Not Resolved]
  - Drug dose omission [Recovered/Resolved]
  - Pain in extremity [Not Recovered/Not Resolved]
  - Asthenia [Recovered/Resolved]
  - Decreased appetite [Recovered/Resolved]
  - Influenza like illness [Recovered/Resolved]
